FAERS Safety Report 7096058-4 (Version None)
Quarter: 2010Q4

REPORT INFORMATION
  Report Type: 
  Country: None (occurrence: None)
  Receive Date: 20101111
  Receipt Date: 20101108
  Transmission Date: 20110411
  Serious: Yes (Death)
  Sender: FDA-Public Use
  Company Number: US-GILEAD-2010-0033298

PATIENT
  Sex: Female

DRUGS (11)
  1. LETAIRIS [Suspect]
     Indication: PULMONARY ARTERIAL HYPERTENSION
     Route: 048
     Dates: start: 20100907
  2. ASPIRIN [Concomitant]
  3. ATENOLOL [Concomitant]
  4. COZAAR [Concomitant]
  5. SIMVASTATIN [Concomitant]
  6. GLIPIZIDE [Concomitant]
  7. LEVEMIR [Concomitant]
  8. OMEPRAZOLE [Concomitant]
  9. COLCHICINE [Concomitant]
  10. ALLOPURINOL [Concomitant]
  11. MULTI-VITAMINS [Concomitant]

REACTIONS (1)
  - DEATH [None]
